FAERS Safety Report 7313699-7 (Version None)
Quarter: 2011Q1

REPORT INFORMATION
  Report Type: 
  Country: None (occurrence: None)
  Receive Date: 20110225
  Receipt Date: 20110214
  Transmission Date: 20110831
  Serious: Yes (Other)
  Sender: FDA-Public Use
  Company Number: CA-ELI_LILLY_AND_COMPANY-CA201102003492

PATIENT
  Age: 26 Year
  Sex: Female

DRUGS (7)
  1. TEMAZEPAM [Concomitant]
  2. ZYPREXA [Suspect]
     Dosage: 2.5 MG, EACH EVENING
     Route: 048
     Dates: start: 19991110, end: 20030818
  3. EPIVAL [Concomitant]
  4. TRIAZIDE [Concomitant]
  5. LIDEX [Concomitant]
     Dosage: UNK, 2/D
     Route: 061
  6. PRILOSEC [Concomitant]
  7. ZYPREXA [Suspect]
     Indication: BIPOLAR DISORDER
     Dosage: 5 MG, EACH EVENING
     Route: 048
     Dates: start: 19991020, end: 19991110

REACTIONS (6)
  - SKIN LESION [None]
  - OEDEMA PERIPHERAL [None]
  - GRANULOMA ANNULARE [None]
  - SKIN DISCOMFORT [None]
  - WEIGHT INCREASED [None]
  - DIABETES MELLITUS [None]
